FAERS Safety Report 9043084 (Version 1)
Quarter: 2013Q1

REPORT INFORMATION
  Report Type: Report from Study
  Country: US (occurrence: US)
  Receive Date: 20130129
  Receipt Date: 20130129
  Transmission Date: 20140127
  Serious: No
  Sender: FDA-Public Use
  Company Number: US-ABBOTT-12P-163-0910404-00

PATIENT
  Age: 35 Year
  Sex: Female

DRUGS (4)
  1. HUMIRA 40 MG/ 0.8 ML PRE-FILLED SYRINGE [Suspect]
     Indication: RHEUMATOID ARTHRITIS
     Dates: start: 20120131
  2. NEURONTIN [Concomitant]
     Indication: MIGRAINE
  3. PRILOSEC [Concomitant]
     Indication: HIATUS HERNIA
  4. ROBAXIN [Concomitant]
     Indication: FIBROMYALGIA

REACTIONS (7)
  - Injection site pain [Not Recovered/Not Resolved]
  - Feeling abnormal [Unknown]
  - Pain [Unknown]
  - Injection site pruritus [Unknown]
  - Injection site erythema [Unknown]
  - Injection site papule [Unknown]
  - Injection site warmth [Unknown]
